FAERS Safety Report 18486965 (Version 1)
Quarter: 2020Q4

REPORT INFORMATION
  Report Type: Report from Study
  Country: US (occurrence: US)
  Receive Date: 20201110
  Receipt Date: 20201110
  Transmission Date: 20210114
  Serious: Yes (Death)
  Sender: FDA-Public Use
  Company Number: US-ASTRAZENECA-2020SF46223

PATIENT
  Age: 84 Year
  Sex: Male
  Weight: 76.2 kg

DRUGS (2)
  1. SYMBICORT [Suspect]
     Active Substance: BUDESONIDE\FORMOTEROL FUMARATE DIHYDRATE
     Indication: EMPHYSEMA
     Dosage: 2 PUFFS, TWICE DAILY, START DATE MAYBE 2 YEARS AGO
     Route: 055
  2. SYMBICORT [Suspect]
     Active Substance: BUDESONIDE\FORMOTEROL FUMARATE DIHYDRATE
     Indication: ASTHMA
     Dosage: 2 PUFFS, TWICE DAILY, START DATE MAYBE 2 YEARS AGO
     Route: 055

REACTIONS (5)
  - Weight decreased [Unknown]
  - COVID-19 [Unknown]
  - Oxygen saturation decreased [Unknown]
  - Death [Fatal]
  - Dyspnoea exertional [Unknown]

NARRATIVE: CASE EVENT DATE: 2019
